FAERS Safety Report 24166797 (Version 1)
Quarter: 2024Q3

REPORT INFORMATION
  Report Type: Report from Study
  Country: US (occurrence: None)
  Receive Date: 20240802
  Receipt Date: 20240802
  Transmission Date: 20241016
  Serious: Yes (Other)
  Sender: ASTRAZENECA
  Company Number: 2022A381401

PATIENT
  Sex: Male
  Weight: 108.9 kg

DRUGS (1)
  1. FARXIGA [Suspect]
     Active Substance: DAPAGLIFLOZIN PROPANEDIOL
     Indication: Glomerular filtration rate abnormal
     Route: 048

REACTIONS (4)
  - Malignant melanoma [Not Recovered/Not Resolved]
  - Weight decreased [Unknown]
  - Body height decreased [Unknown]
  - Hernia [Unknown]
